FAERS Safety Report 7946337-0 (Version None)
Quarter: 2011Q4

REPORT INFORMATION
  Report Type: 
  Country: None (occurrence: None)
  Receive Date: 20111129
  Receipt Date: 20111119
  Transmission Date: 20120403
  Serious: Yes (Other)
  Sender: FDA-Public Use
  Company Number: US-ACTELION-A-NJ2011-54259

PATIENT

DRUGS (3)
  1. TRACLEER [Suspect]
     Indication: PULMONARY ARTERIAL HYPERTENSION
     Dosage: UNK
     Route: 048
     Dates: start: 20110815, end: 20110913
  2. REVATIO [Concomitant]
  3. COUMADIN [Concomitant]

REACTIONS (5)
  - ANAEMIA [None]
  - SURGERY [None]
  - HAEMOGLOBIN DECREASED [None]
  - RENAL MASS [None]
  - HAEMATOCRIT DECREASED [None]
